FAERS Safety Report 17853912 (Version 1)
Quarter: 2020Q2

REPORT INFORMATION
  Report Type: Report from Study
  Country: DE (occurrence: DE)
  Receive Date: 20200602
  Receipt Date: 20200602
  Transmission Date: 20200714
  Serious: Yes (Other)
  Sender: FDA-Public Use
  Company Number: DE-BIOGEN-2020BI00882343

PATIENT
  Sex: Female

DRUGS (5)
  1. LEVOTHYROXINE. [Concomitant]
     Active Substance: LEVOTHYROXINE
     Indication: PREGNANCY
     Dosage: 50 MCG AND 75 MCG IN ALTERNATING ORDER
     Route: 065
     Dates: start: 2019
  2. ELEVIT [Concomitant]
     Active Substance: FOLIC ACID\IRON\MINERALS\VITAMINS
     Indication: PREGNANCY
     Route: 065
     Dates: start: 2019
  3. MAGNESIUM [Concomitant]
     Active Substance: MAGNESIUM
     Indication: PREGNANCY
     Route: 065
     Dates: start: 201912
  4. VITAMIN D3 [Concomitant]
     Active Substance: CHOLECALCIFEROL
     Indication: PREGNANCY
     Route: 065
     Dates: start: 2019
  5. TECFIDERA [Suspect]
     Active Substance: DIMETHYL FUMARATE
     Indication: MULTIPLE SCLEROSIS
     Route: 048
     Dates: start: 20160201, end: 201912

REACTIONS (2)
  - Abortion spontaneous [Recovered/Resolved]
  - Maternal exposure during pregnancy [Recovered/Resolved]
